FAERS Safety Report 8432552-9 (Version None)
Quarter: 2012Q2

REPORT INFORMATION
  Report Type: 
  Country: None (occurrence: None)
  Receive Date: 20120606
  Receipt Date: 20120525
  Transmission Date: 20120825
  Serious: Yes (Congenital Anomaly, Other)
  Sender: FDA-Public Use
  Company Number: AUR-APL-2012-02397

PATIENT
  Sex: Male
  Weight: 3.3 kg

DRUGS (4)
  1. LAMOTRIGINE [Suspect]
     Indication: EPILEPSY
     Dosage: 100 MG (100 MG,1 IN 1 D),TRANSPLACENTAL
     Route: 064
  2. VALPROATE SODIUM [Suspect]
     Indication: EPILEPSY
     Dosage: 1 GM (1 GM,1 IN 1 D),TRANSPLACENTAL
     Route: 064
  3. PROCHLORPERAZINE MALEATE [Concomitant]
  4. CLOBAZAM [Suspect]
     Indication: EPILEPSY
     Dosage: 10 MG (10 MG,1 IN 1 D),TRANSPLACENTAL
     Route: 064

REACTIONS (5)
  - LIMB REDUCTION DEFECT [None]
  - JOINT DISLOCATION [None]
  - WRIST DEFORMITY [None]
  - HAND DEFORMITY [None]
  - MATERNAL DRUGS AFFECTING FOETUS [None]
